FAERS Safety Report 16371507 (Version 2)
Quarter: 2020Q4

REPORT INFORMATION
  Report Type: Spontaneous
  Country: US (occurrence: US)
  Receive Date: 20190530
  Receipt Date: 20201110
  Transmission Date: 20210113
  Serious: No
  Sender: FDA-Public Use
  Company Number: US-PFIZER INC-2019201570

PATIENT
  Age: 70 Year
  Sex: Male
  Weight: 97.07 kg

DRUGS (1)
  1. LYRICA CR [Suspect]
     Active Substance: PREGABALIN
     Dosage: 165 MG, UNK (TAKEN 2 TIMES; TOOK AT NIGHT, NOW TAKES ABOUT LATE AFTERNOON OR SUPPER TIME)

REACTIONS (2)
  - Hypersensitivity [Recovered/Resolved]
  - Inflammation [Unknown]
